APPROVED DRUG PRODUCT: OXYTROL
Active Ingredient: OXYBUTYNIN
Strength: 3.9MG/24HR
Dosage Form/Route: FILM, EXTENDED RELEASE;TRANSDERMAL
Application: N021351 | Product #002
Applicant: ALLERGAN SALES LLC
Approved: Feb 26, 2003 | RLD: Yes | RS: Yes | Type: RX